FAERS Safety Report 8317074-8 (Version None)
Quarter: 2012Q2

REPORT INFORMATION
  Report Type: 
  Country: None (occurrence: None)
  Receive Date: 20120427
  Receipt Date: 20120419
  Transmission Date: 20120825
  Serious: Yes (Hospitalization)
  Sender: FDA-Public Use
  Company Number: US-BAYER-2011-123853

PATIENT
  Age: 42 Year
  Sex: Female
  Weight: 68.481 kg

DRUGS (7)
  1. FLUTICASONE FUROATE [Concomitant]
     Dosage: 50 MCG 1 SPRAY EACH NOSTRIL
     Route: 045
  2. IBUPROFEN [Concomitant]
     Indication: TENDONITIS
     Route: 048
  3. BACTRIM [Concomitant]
     Dosage: 160-800 MG, BID
     Route: 048
  4. METRONIDAZOLE [Concomitant]
     Dosage: 500 MG, BID
     Route: 048
  5. LORAZEPAM [Concomitant]
     Dosage: 0.5 MG, BID AS NEEDEED
     Route: 048
  6. YASMIN [Suspect]
     Indication: CONTRACEPTION
     Dosage: UNK
     Route: 048
     Dates: start: 20090427, end: 20091018
  7. MELOXICAM [Concomitant]
     Dosage: 7.5 MG, BID
     Route: 048

REACTIONS (8)
  - DEEP VEIN THROMBOSIS [None]
  - PAIN [None]
  - GENERAL PHYSICAL HEALTH DETERIORATION [None]
  - OEDEMA PERIPHERAL [None]
  - PAIN IN EXTREMITY [None]
  - EMOTIONAL DISTRESS [None]
  - MENTAL DISORDER [None]
  - ANXIETY [None]
